FAERS Safety Report 10043395 (Version 2)
Quarter: 2014Q1

REPORT INFORMATION
  Report Type: Spontaneous
  Country: US (occurrence: US)
  Receive Date: 20140328
  Receipt Date: 20140328
  Transmission Date: 20141002
  Serious: No
  Sender: FDA-Public Use
  Company Number: US-PFIZER INC-2013304618

PATIENT
  Age: 64 Year
  Sex: Female

DRUGS (15)
  1. LYRICA [Suspect]
     Dosage: 100 MG, 4X/DAY
     Route: 048
  2. NORVASC [Suspect]
     Dosage: UNK
  3. ESTRADIOL [Concomitant]
     Dosage: UNK
  4. NORTRIPTYLINE HYDROCHLORIDE [Concomitant]
     Dosage: UNK
  5. CELEBREX [Concomitant]
     Dosage: UNK
  6. PRAVASTATIN [Concomitant]
     Dosage: UNK
  7. VERAMYST [Concomitant]
     Dosage: UNK
  8. MELATONIN [Concomitant]
     Dosage: UNK
  9. VITAMIN D [Concomitant]
     Dosage: UNK
  10. VITAMIN E [Concomitant]
     Dosage: UNK
  11. TOPROL XL [Concomitant]
     Dosage: UNK
  12. MEDROXYPROGESTERONE [Concomitant]
     Dosage: UNK
  13. AMLODIPINE [Concomitant]
     Dosage: UNK
  14. CLONIDINE [Concomitant]
     Dosage: UNK
  15. FISH OIL [Concomitant]
     Dosage: UNK

REACTIONS (2)
  - Abdominal discomfort [Unknown]
  - Fibromyalgia [Unknown]
